FAERS Safety Report 24715512 (Version 2)
Quarter: 2025Q4

REPORT INFORMATION
  Report Type: Report from Study
  Country: EU (occurrence: EU)
  Receive Date: 20241210
  Receipt Date: 20251125
  Transmission Date: 20260118
  Serious: No
  Sender: TAKEDA
  Company Number: EU-TAKEDA-2023TUS105882

PATIENT
  Sex: Female

DRUGS (3)
  1. HUMAN IMMUNOGLOBULIN G [Suspect]
     Active Substance: HUMAN IMMUNOGLOBULIN G
     Indication: Primary immunodeficiency syndrome
     Dosage: 3 GRAM, 2/WEEK
     Dates: start: 20140805
  2. HUMAN IMMUNOGLOBULIN G [Suspect]
     Active Substance: HUMAN IMMUNOGLOBULIN G
     Dosage: 4 GRAM, 1/WEEK
  3. HUMAN IMMUNOGLOBULIN G [Suspect]
     Active Substance: HUMAN IMMUNOGLOBULIN G
     Dosage: 4 GRAM

REACTIONS (2)
  - No adverse event [Unknown]
  - Intentional product use issue [Unknown]
